FAERS Safety Report 7635479-5 (Version None)
Quarter: 2011Q3

REPORT INFORMATION
  Report Type: 
  Country: None (occurrence: None)
  Receive Date: 20110726
  Receipt Date: 20110726
  Transmission Date: 20111222
  Serious: Yes (Other)
  Sender: FDA-Public Use
  Company Number: None

PATIENT
  Age: 26 Year
  Sex: Female
  Weight: 56.699 kg

DRUGS (2)
  1. NON-DROWSY 12 HOUR COLD RELIEF (OTC) [Suspect]
     Indication: NASOPHARYNGITIS
     Dosage: 120MG
     Route: 048
     Dates: start: 20110724, end: 20110724
  2. NON-DROWSY 12 HOUR COLD RELIEF (OTC) [Suspect]
     Indication: SINUS HEADACHE
     Dosage: 120MG
     Route: 048
     Dates: start: 20110724, end: 20110724

REACTIONS (5)
  - HEART RATE INCREASED [None]
  - HYPERHIDROSIS [None]
  - PALPITATIONS [None]
  - DIZZINESS [None]
  - TREMOR [None]
